FAERS Safety Report 8178760-6 (Version None)
Quarter: 2012Q1

REPORT INFORMATION
  Report Type: 
  Country: None (occurrence: None)
  Receive Date: 20120301
  Receipt Date: 20120301
  Transmission Date: 20120608
  Serious: Yes (Other)
  Sender: FDA-Public Use
  Company Number: None

PATIENT
  Age: 43 Year
  Sex: Female
  Weight: 56.699 kg

DRUGS (1)
  1. ALLI [Suspect]
     Dosage: 60.0 MG
     Route: 048
     Dates: start: 20070623, end: 20120221

REACTIONS (1)
  - NEPHROLITHIASIS [None]
